FAERS Safety Report 14338743 (Version 1)
Quarter: 2017Q4

REPORT INFORMATION
  Report Type: Spontaneous
  Country: US (occurrence: ES)
  Receive Date: 20171229
  Receipt Date: 20171229
  Transmission Date: 20180321
  Serious: Yes (Other)
  Sender: FDA-Public Use
  Company Number: US-SUNOVION-2017SUN005482

PATIENT

DRUGS (5)
  1. BETA BLOCKING AGENTS [Concomitant]
     Active Substance: UNSPECIFIED INGREDIENT
  2. CARBONIC ANHYDRASE INHIBITORS [Concomitant]
  3. INDACATEROL AND GLYCOPYRROLATE [Suspect]
     Active Substance: GLYCOPYRROLATE\INDACATEROL MALEATE
     Indication: CHRONIC OBSTRUCTIVE PULMONARY DISEASE
     Dosage: ULTIBRO BREEZHALER (INDACATEROL, GLYCOPYRRONIUM BROMIDE) 85/43 UG, 1 DF, UNK
     Route: 055
     Dates: start: 201604, end: 20171120
  4. PROSTAGLANDIN ANALOGUES [Concomitant]
     Active Substance: UNSPECIFIED INGREDIENT
  5. DUODART [Concomitant]
     Active Substance: DUTASTERIDE\TAMSULOSIN

REACTIONS (6)
  - Photophobia [Unknown]
  - Visual field defect [Unknown]
  - Ocular discomfort [Unknown]
  - Vision blurred [Unknown]
  - Somnolence [Unknown]
  - Glaucoma [Recovered/Resolved]

NARRATIVE: CASE EVENT DATE: 20171120
